FAERS Safety Report 21629872 (Version 1)
Quarter: 2022Q4

REPORT INFORMATION
  Report Type: Spontaneous
  Country: US (occurrence: None)
  Receive Date: 20221122
  Receipt Date: 20221122
  Transmission Date: 20230112
  Serious: No
  Sender: FDA-Public Use
  Company Number: None

PATIENT
  Age: 32 Year
  Sex: Female
  Weight: 76.95 kg

DRUGS (1)
  1. DEXTROAMPHET SACCHARAT, AMPHET ASPARTATE, DEXTROAMPHET SULFATE AND AMP [Suspect]
     Active Substance: AMPHETAMINE ASPARTATE\AMPHETAMINE SULFATE\DEXTROAMPHETAMINE SACCHARATE\DEXTROAMPHETAMINE SULFATE
     Indication: Attention deficit hyperactivity disorder
     Dosage: 30 CAPSULE(S) ORAL?
     Route: 048
     Dates: start: 20221118, end: 20221122

REACTIONS (8)
  - Therapy non-responder [None]
  - Irritability [None]
  - Crying [None]
  - Restlessness [None]
  - Skin exfoliation [None]
  - Dry skin [None]
  - Skin exfoliation [None]
  - Product substitution issue [None]

NARRATIVE: CASE EVENT DATE: 20221118
